FAERS Safety Report 5024550-2 (Version None)
Quarter: 2006Q2

REPORT INFORMATION
  Report Type: 
  Country: None (occurrence: None)
  Receive Date: 20060613
  Receipt Date: 20060530
  Transmission Date: 20061013
  Serious: Yes (Death)
  Sender: FDA-Public Use
  Company Number: PHFR2006GB01847

PATIENT
  Age: 76 Year
  Sex: Female

DRUGS (6)
  1. CYCLOSPORINE [Suspect]
     Indication: PUSTULAR PSORIASIS
     Route: 048
  2. METHOTREXATE (NGX) [Suspect]
     Indication: PUSTULAR PSORIASIS
     Route: 048
  3. REMICADE [Suspect]
     Indication: PUSTULAR PSORIASIS
     Route: 065
  4. ACITRETIN [Concomitant]
     Indication: PUSTULAR PSORIASIS
  5. AZATHIOPRINE [Concomitant]
     Indication: COLITIS ULCERATIVE
  6. HYDROXYUREA [Concomitant]
     Indication: PUSTULAR PSORIASIS

REACTIONS (3)
  - PNEUMONITIS [None]
  - RENAL IMPAIRMENT [None]
  - T-CELL LYMPHOMA [None]
